FAERS Safety Report 4565679-2 (Version None)
Quarter: 2005Q1

REPORT INFORMATION
  Report Type: 
  Country: None (occurrence: None)
  Receive Date: 20050126
  Receipt Date: 20050103
  Transmission Date: 20050727
  Serious: Yes (Hospitalization, Other)
  Sender: FDA-Public Use
  Company Number: US_0409106184

PATIENT
  Age: 38 Year
  Sex: Female
  Weight: 108.8633 kg

DRUGS (13)
  1. ZYPREXA [Suspect]
     Dosage: 20 MG AT BEDTIME
     Dates: start: 19990125, end: 20030121
  2. PROZAC [Concomitant]
  3. RISPERIDONE [Concomitant]
  4. VENLAFAXINE HCL [Concomitant]
  5. DIVALPROEX SODIUM [Concomitant]
  6. LUVOX [Concomitant]
  7. PAXIL [Concomitant]
  8. DEPAKOTE (VALPROATE SEMISIODIUM) [Concomitant]
  9. TRAZADONE (TRAZODONE) [Concomitant]
  10. CELEXA [Concomitant]
  11. EFFEXOR [Concomitant]
  12. HYDROCHLOROTHIAZIDE [Concomitant]
  13. VISTARIL [Concomitant]

REACTIONS (13)
  - ASTHENIA [None]
  - BACK PAIN [None]
  - BREAST PAIN [None]
  - CELLULITIS [None]
  - CONDITION AGGRAVATED [None]
  - DIABETES MELLITUS [None]
  - DIZZINESS [None]
  - GASTRIC DISORDER [None]
  - GASTROINTESTINAL DISORDER [None]
  - GOUT [None]
  - MUSCULOSKELETAL PAIN [None]
  - STAPHYLOCOCCAL INFECTION [None]
  - SUBCUTANEOUS ABSCESS [None]
